FAERS Safety Report 9826885 (Version 1)
Quarter: 2013Q4

REPORT INFORMATION
  Report Type: Spontaneous
  Country: US (occurrence: None)
  Receive Date: 20131112
  Receipt Date: 20131112
  Transmission Date: 20140711
  Serious: Yes (Other)
  Sender: FDA-Public Use
  Company Number: US-012836

PATIENT
  Age: 50 Year
  Sex: Male
  Weight: 108.86 kg

DRUGS (4)
  1. PICO-SALAX [Suspect]
     Indication: BOWEL PREPARATION
     Dosage: 1ST DOSE AT 12 PM AND 2ND DOSE AT 6 PM
     Dates: start: 20130826, end: 20130826
  2. VICODIN [Concomitant]
  3. LISINOPRIL [Concomitant]
  4. NABUMETONE [Concomitant]

REACTIONS (1)
  - Drug ineffective [None]
